FAERS Safety Report 6065516-3 (Version None)
Quarter: 2009Q1

REPORT INFORMATION
  Report Type: 
  Country: None (occurrence: None)
  Receive Date: 20090204
  Receipt Date: 20090123
  Transmission Date: 20090719
  Serious: Yes (Other)
  Sender: FDA-Public Use
  Company Number: JP-PFIZER INC-2009162356

PATIENT

DRUGS (1)
  1. ZOLOFT [Suspect]
     Indication: PANIC DISORDER
     Dosage: UNK
     Route: 048
     Dates: start: 20090114, end: 20090116

REACTIONS (1)
  - LOSS OF CONSCIOUSNESS [None]
